FAERS Safety Report 9095749 (Version 1)
Quarter: 2013Q1

REPORT INFORMATION
  Report Type: Spontaneous
  Country: DK (occurrence: None)
  Receive Date: 20130124
  Receipt Date: 20130124
  Transmission Date: 20140127
  Serious: Yes (Other)
  Sender: FDA-Public Use
  Company Number: 2013MA000615

PATIENT
  Age: 30 Year
  Sex: Female

DRUGS (1)
  1. CITALOPRAM HYDROBROMIDE [Suspect]
     Indication: DEPRESSION
     Route: 048
     Dates: start: 200202, end: 201211

REACTIONS (7)
  - Panic attack [None]
  - Nervousness [None]
  - Tachycardia [None]
  - Dizziness [None]
  - Headache [None]
  - Gastrointestinal pain [None]
  - Withdrawal syndrome [None]
